FAERS Safety Report 5557914-9 (Version None)
Quarter: 2007Q4

REPORT INFORMATION
  Report Type: 
  Country: None (occurrence: None)
  Receive Date: 20071214
  Receipt Date: 20071206
  Transmission Date: 20080405
  Serious: Yes (Other)
  Sender: FDA-Public Use
  Company Number: JP-ROCHE-495511

PATIENT
  Age: 9 Year
  Sex: Male

DRUGS (1)
  1. TAMIFLU [Suspect]
     Route: 048
     Dates: start: 20070226, end: 20070226

REACTIONS (4)
  - FLUSHING [None]
  - HYPERHIDROSIS [None]
  - NIGHTMARE [None]
  - SLEEP TERROR [None]
